FAERS Safety Report 7212284-5 (Version None)
Quarter: 2011Q1

REPORT INFORMATION
  Report Type: 
  Country: None (occurrence: None)
  Receive Date: 20110106
  Receipt Date: 20101224
  Transmission Date: 20110831
  Serious: Yes (Other)
  Sender: FDA-Public Use
  Company Number: PHHY2010JP58079

PATIENT
  Sex: Female

DRUGS (11)
  1. NEORAL [Suspect]
     Dosage: 70 MG, UNK
     Route: 048
     Dates: start: 20100906, end: 20100914
  2. MUCOSTA [Concomitant]
     Dosage: UNK
     Route: 048
     Dates: start: 20100809, end: 20101128
  3. PENTCILLIN [Concomitant]
     Dosage: UNK
     Dates: start: 20100830, end: 20100830
  4. NEORAL [Suspect]
     Dosage: 70 MG, UNK
     Route: 048
     Dates: start: 20100820, end: 20100830
  5. ZOVIRAX [Concomitant]
     Dosage: UNK
     Dates: start: 20100924, end: 20100930
  6. MAGMITT [Concomitant]
     Dosage: UNK
     Route: 048
     Dates: start: 20100925
  7. ROCEPHIN [Concomitant]
     Dosage: UNK
     Dates: start: 20100921, end: 20101112
  8. NEORAL [Suspect]
     Indication: APLASIA PURE RED CELL
     Dosage: 70 MG DAILY
     Route: 048
     Dates: end: 20100814
  9. MEROPENEM [Concomitant]
     Dosage: UNK
     Dates: start: 20100831, end: 20101201
  10. SENNOSIDE [Concomitant]
     Dosage: UNK
     Dates: start: 20100903
  11. CEFAZOLIN SODIUM [Concomitant]
     Dosage: UNK
     Dates: start: 20100816, end: 20100816

REACTIONS (6)
  - FALL [None]
  - SURGERY [None]
  - PYELONEPHRITIS [None]
  - SEPSIS [None]
  - HERPES ZOSTER [None]
  - URINARY TRACT INFECTION [None]
